FAERS Safety Report 7065097-1 (Version None)
Quarter: 2010Q4

REPORT INFORMATION
  Report Type: 
  Country: None (occurrence: None)
  Receive Date: 20101027
  Receipt Date: 19910809
  Transmission Date: 20110411
  Serious: Yes (Death, Life-Threatening)
  Sender: FDA-Public Use
  Company Number: JP-ROCHE-910900043001

PATIENT
  Sex: Male

DRUGS (16)
  1. ROCEPHIN [Suspect]
     Indication: NEPHRITIS
     Route: 042
     Dates: start: 19910517, end: 19910523
  2. CANFERON-A [Suspect]
     Route: 030
     Dates: start: 19910513, end: 19910515
  3. CANFERON-A [Suspect]
     Route: 030
     Dates: start: 19910516, end: 19910517
  4. CANFERON-A [Suspect]
     Route: 030
     Dates: start: 19910518, end: 19910519
  5. CANFERON-A [Suspect]
     Route: 030
     Dates: start: 19910520, end: 19910520
  6. MINOPHAGEN C [Concomitant]
     Route: 042
     Dates: start: 19910514, end: 19910523
  7. SOLCOSERYL [Concomitant]
     Indication: HEPATITIS
     Route: 042
     Dates: start: 19910514, end: 19910523
  8. ALTAT [Concomitant]
     Route: 048
     Dates: start: 19910513, end: 19910523
  9. PREDNISOLONE [Concomitant]
     Indication: HEPATITIS
     Route: 048
     Dates: start: 19910517, end: 19910519
  10. PREDNISOLONE [Concomitant]
     Route: 048
     Dates: start: 19910520, end: 19910522
  11. PREDNISOLONE [Concomitant]
     Route: 048
     Dates: start: 19910523, end: 19910524
  12. PREDNISOLONE [Concomitant]
     Route: 048
     Dates: start: 19910525, end: 19910527
  13. FOY [Concomitant]
     Route: 042
     Dates: start: 19910517, end: 19910529
  14. LASIX [Concomitant]
     Route: 042
     Dates: start: 19910517, end: 19910531
  15. ALDACTONE [Concomitant]
     Route: 048
     Dates: start: 19910517, end: 19910531
  16. TRILUDAN [Concomitant]
     Route: 048
     Dates: start: 19910509, end: 19910513

REACTIONS (2)
  - HEPATIC FAILURE [None]
  - RENAL FAILURE ACUTE [None]
